FAERS Safety Report 5566801-1 (Version None)
Quarter: 2007Q4

REPORT INFORMATION
  Report Type: 
  Country: None (occurrence: None)
  Receive Date: 20071219
  Receipt Date: 20071217
  Transmission Date: 20080405
  Serious: Yes (Death)
  Sender: FDA-Public Use
  Company Number: B0483280A

PATIENT
  Age: 62 Year
  Sex: Male

DRUGS (9)
  1. RANIDIL [Suspect]
     Dosage: 50MG PER DAY
     Route: 042
     Dates: start: 20070722, end: 20070723
  2. KETOPROFEN [Concomitant]
     Route: 042
     Dates: start: 20070722, end: 20070722
  3. PANTOPRAZOLE SODIUM [Concomitant]
     Dates: start: 20070722, end: 20070722
  4. ASPIRIN [Concomitant]
     Route: 048
  5. BISOPROLOL [Concomitant]
  6. GLIMEPIRIDE [Concomitant]
     Route: 048
  7. METFORMIN HYDROCHLORIDE [Concomitant]
  8. OMEGA 3 [Concomitant]
  9. TELMISARTAN [Concomitant]
     Indication: HYPERTENSION
     Route: 048

REACTIONS (3)
  - GASTROINTESTINAL NECROSIS [None]
  - LIVEDO RETICULARIS [None]
  - MELAENA [None]
